FAERS Safety Report 6299726-7 (Version None)
Quarter: 2009Q3

REPORT INFORMATION
  Report Type: 
  Country: None (occurrence: None)
  Receive Date: 20090806
  Receipt Date: 20090728
  Transmission Date: 20100115
  Serious: Yes (Hospitalization)
  Sender: FDA-Public Use
  Company Number: FR-ABBOTT-09P-056-0588532-00

PATIENT
  Age: 43 Year
  Sex: Female

DRUGS (4)
  1. SEVOFLURANE [Suspect]
     Indication: ANAESTHESIA
     Route: 055
     Dates: start: 20090703, end: 20090703
  2. CELOCURINE [Suspect]
     Indication: ANAESTHESIA
     Route: 042
     Dates: start: 20090703, end: 20090703
  3. SUFENTANIL [Suspect]
     Indication: ANAESTHESIA
     Route: 042
     Dates: start: 20090703, end: 20090703
  4. PROPOFOL [Suspect]
     Indication: ANAESTHESIA
     Route: 042
     Dates: start: 20090703, end: 20090703

REACTIONS (1)
  - ANAPHYLACTIC SHOCK [None]
